FAERS Safety Report 18697331 (Version 1)
Quarter: 2021Q1

REPORT INFORMATION
  Report Type: Spontaneous
  Country: GB (occurrence: GB)
  Receive Date: 20210105
  Receipt Date: 20210105
  Transmission Date: 20210419
  Serious: Yes (Other)
  Sender: FDA-Public Use
  Company Number: GB-BEH-2020125399

PATIENT
  Age: 32 Year
  Sex: Female

DRUGS (6)
  1. RHOPHYLAC [Suspect]
     Active Substance: HUMAN RHO(D) IMMUNE GLOBULIN
     Indication: RHESUS ANTIBODIES
     Dosage: 14000 INTERNATIONAL UNIT
     Route: 042
     Dates: start: 20201119, end: 20201119
  2. RHOPHYLAC [Suspect]
     Active Substance: HUMAN RHO(D) IMMUNE GLOBULIN
     Indication: RHESUS ANTIBODIES
     Dosage: 14000 INTERNATIONAL UNIT
     Route: 042
     Dates: start: 20201119, end: 20201119
  3. RHOPHYLAC [Suspect]
     Active Substance: HUMAN RHO(D) IMMUNE GLOBULIN
     Indication: POSTPARTUM HAEMORRHAGE
     Dosage: 300 MICROGRAM/2 ML, SOLUTION FOR INJECTION IN PRE?FILLED SYRINGE
     Route: 042
  4. RHOPHYLAC [Suspect]
     Active Substance: HUMAN RHO(D) IMMUNE GLOBULIN
     Indication: POSTPARTUM HAEMORRHAGE
     Dosage: 300 MICROGRAM/2 ML, SOLUTION FOR INJECTION IN PRE?FILLED SYRINGE
     Route: 042
  5. RHOPHYLAC [Suspect]
     Active Substance: HUMAN RHO(D) IMMUNE GLOBULIN
     Dosage: 1500 INTERNATIONAL UNIT, TOT
     Route: 030
     Dates: start: 20200818, end: 20200818
  6. RHOPHYLAC [Suspect]
     Active Substance: HUMAN RHO(D) IMMUNE GLOBULIN
     Dosage: 1500 INTERNATIONAL UNIT, TOT
     Route: 030
     Dates: start: 20200818, end: 20200818

REACTIONS (6)
  - Chills [Recovered/Resolved]
  - Exposure during pregnancy [Unknown]
  - No adverse event [Unknown]
  - Adverse drug reaction [Recovered/Resolved]
  - Overdose [Recovered/Resolved]
  - Back pain [Recovered/Resolved]

NARRATIVE: CASE EVENT DATE: 20201119
